FAERS Safety Report 20301070 (Version 1)
Quarter: 2022Q1

REPORT INFORMATION
  Report Type: Spontaneous
  Country: IN (occurrence: IN)
  Receive Date: 20220105
  Receipt Date: 20220105
  Transmission Date: 20220423
  Serious: Yes (Death, Other)
  Sender: FDA-Public Use
  Company Number: IN-PFIZER INC-2020242012

PATIENT
  Age: 51 Year
  Sex: Female
  Weight: 47 kg

DRUGS (2)
  1. CRIZOTINIB [Suspect]
     Active Substance: CRIZOTINIB
     Dosage: UNK, 2X/DAY
  2. CRIZOTINIB [Suspect]
     Active Substance: CRIZOTINIB
     Dosage: UNK, 2X/DAY (250 BD 1 MONTH)

REACTIONS (2)
  - Death [Fatal]
  - Dementia Alzheimer^s type [Unknown]
